FAERS Safety Report 23586221 (Version 2)
Quarter: 2025Q1

REPORT INFORMATION
  Report Type: Spontaneous
  Country: US (occurrence: US)
  Receive Date: 20240301
  Receipt Date: 20250220
  Transmission Date: 20250409
  Serious: Yes (Other)
  Sender: MYLAN
  Company Number: US-MYLANLABS-2024M1019390

PATIENT
  Age: 65 Year
  Sex: Female

DRUGS (30)
  1. SUNITINIB [Suspect]
     Active Substance: SUNITINIB
     Indication: Clear cell renal cell carcinoma
     Route: 065
  2. SUNITINIB [Suspect]
     Active Substance: SUNITINIB
     Indication: Metastases to lung
  3. SUNITINIB [Suspect]
     Active Substance: SUNITINIB
     Indication: Metastases to the mediastinum
  4. EVEROLIMUS [Suspect]
     Active Substance: EVEROLIMUS
     Indication: Clear cell renal cell carcinoma
     Route: 065
  5. EVEROLIMUS [Suspect]
     Active Substance: EVEROLIMUS
     Indication: Metastases to lung
  6. EVEROLIMUS [Suspect]
     Active Substance: EVEROLIMUS
     Indication: Metastases to the mediastinum
  7. IPILIMUMAB [Suspect]
     Active Substance: IPILIMUMAB
     Indication: Clear cell renal cell carcinoma
     Route: 065
  8. IPILIMUMAB [Suspect]
     Active Substance: IPILIMUMAB
     Indication: Metastases to lung
  9. IPILIMUMAB [Suspect]
     Active Substance: IPILIMUMAB
     Indication: Metastases to the mediastinum
  10. NIVOLUMAB [Suspect]
     Active Substance: NIVOLUMAB
     Indication: Clear cell renal cell carcinoma
     Route: 065
  11. NIVOLUMAB [Suspect]
     Active Substance: NIVOLUMAB
     Indication: Metastases to lung
  12. NIVOLUMAB [Suspect]
     Active Substance: NIVOLUMAB
     Indication: Metastases to the mediastinum
  13. PEMBROLIZUMAB [Suspect]
     Active Substance: PEMBROLIZUMAB
     Indication: Clear cell renal cell carcinoma
     Route: 065
  14. PEMBROLIZUMAB [Suspect]
     Active Substance: PEMBROLIZUMAB
     Indication: Metastases to lung
  15. PEMBROLIZUMAB [Suspect]
     Active Substance: PEMBROLIZUMAB
     Indication: Metastases to the mediastinum
  16. AXITINIB [Suspect]
     Active Substance: AXITINIB
     Indication: Clear cell renal cell carcinoma
     Route: 065
  17. AXITINIB [Suspect]
     Active Substance: AXITINIB
     Indication: Metastases to lung
  18. AXITINIB [Suspect]
     Active Substance: AXITINIB
     Indication: Metastases to the mediastinum
  19. CABOZANTINIB [Suspect]
     Active Substance: CABOZANTINIB
     Indication: Clear cell renal cell carcinoma
     Route: 065
  20. CABOZANTINIB [Suspect]
     Active Substance: CABOZANTINIB
     Indication: Metastases to lung
  21. CABOZANTINIB [Suspect]
     Active Substance: CABOZANTINIB
     Indication: Metastases to the mediastinum
  22. LENVATINIB [Suspect]
     Active Substance: LENVATINIB
     Indication: Clear cell renal cell carcinoma
     Route: 065
  23. LENVATINIB [Suspect]
     Active Substance: LENVATINIB
     Indication: Metastases to lung
  24. LENVATINIB [Suspect]
     Active Substance: LENVATINIB
     Indication: Metastases to the mediastinum
  25. PAZOPANIB [Suspect]
     Active Substance: PAZOPANIB
     Indication: Clear cell renal cell carcinoma
     Route: 065
  26. PAZOPANIB [Suspect]
     Active Substance: PAZOPANIB
     Indication: Metastases to lung
  27. PAZOPANIB [Suspect]
     Active Substance: PAZOPANIB
     Indication: Metastases to the mediastinum
  28. TIVOZANIB [Suspect]
     Active Substance: TIVOZANIB
     Indication: Clear cell renal cell carcinoma
     Route: 065
  29. TIVOZANIB [Suspect]
     Active Substance: TIVOZANIB
     Indication: Metastases to lung
  30. TIVOZANIB [Suspect]
     Active Substance: TIVOZANIB
     Indication: Metastases to the mediastinum

REACTIONS (4)
  - Disease progression [Unknown]
  - Drug ineffective [Unknown]
  - Metastases to pleura [Unknown]
  - Malignant pleural effusion [Unknown]

NARRATIVE: CASE EVENT DATE: 20220401
